FAERS Safety Report 24194143 (Version 2)
Quarter: 2024Q3

REPORT INFORMATION
  Report Type: Spontaneous
  Country: JP (occurrence: JP)
  Receive Date: 20240809
  Receipt Date: 20240826
  Transmission Date: 20241017
  Serious: Yes (Disabling, Other)
  Sender: REGENERON
  Company Number: JP-BAYER-2024A109371

PATIENT
  Age: 73 Year
  Sex: Male

DRUGS (3)
  1. EYLEA [Suspect]
     Active Substance: AFLIBERCEPT
     Indication: Neovascular age-related macular degeneration
     Dosage: UNK UNK, ONCE, 40 MG/MLSOLUTION FOR INJECTION IN PRE-FILLED SYRINGE
     Route: 031
     Dates: start: 20211220, end: 20211220
  2. EYLEA [Suspect]
     Active Substance: AFLIBERCEPT
     Indication: Detachment of retinal pigment epithelium
     Dosage: UNK, ONCE, 40 MG/MLSOLUTION FOR INJECTION IN PRE-FILLED SYRINGE
     Route: 031
     Dates: start: 20220228, end: 20220228
  3. EYLEA [Suspect]
     Active Substance: AFLIBERCEPT
     Dosage: UNK, ONCE, 40 MG/MLSOLUTION FOR INJECTION IN PRE-FILLED SYRINGE
     Route: 031
     Dates: start: 20220328, end: 20220328

REACTIONS (4)
  - Macular hole [Recovering/Resolving]
  - Retinal haemorrhage [Recovering/Resolving]
  - Cataract operation [Unknown]
  - Retinal pigment epithelial tear [Not Recovered/Not Resolved]

NARRATIVE: CASE EVENT DATE: 20220329
